FAERS Safety Report 5139482-9 (Version None)
Quarter: 2006Q4

REPORT INFORMATION
  Report Type: 
  Country: None (occurrence: None)
  Receive Date: 20061026
  Receipt Date: 20061026
  Transmission Date: 20070319
  Serious: Yes (Hospitalization)
  Sender: FDA-Public Use
  Company Number: None

PATIENT
  Sex: Female
  Weight: 83.9 kg

DRUGS (19)
  1. CETUXIMAB, 250MG/M2, BRISTOL MYERS SQUIBB [Suspect]
     Indication: CERVIX CARCINOMA
     Dosage: 445 MG WEEKLY IV
     Route: 042
     Dates: start: 20060831
  2. CETUXIMAB, 250 MG/M2, BRISTOL MYERS SQUIBB [Suspect]
     Indication: CERVIX CARCINOMA
     Dosage: 473 MG WEEKLY IV
     Route: 042
     Dates: start: 20060907
  3. CETUXIMAB, 250 MG/M2, BRISTOL MYERS SQUIBB [Suspect]
     Indication: CERVIX CARCINOMA
     Dosage: 473 MG WEEKLY IV
     Route: 042
     Dates: start: 20060914
  4. DOXYCYCLINE [Concomitant]
  5. ROSIGLITAZONE [Concomitant]
  6. DOCUSATE [Concomitant]
  7. DEXAMETHASONE TAB [Concomitant]
  8. METOPROLOL TARTRATE [Concomitant]
  9. LISINOPRIL [Concomitant]
  10. NISOLDIPINE [Concomitant]
  11. CLONIDINE [Concomitant]
  12. OXYCODONE HCL [Concomitant]
  13. LORAZEPAM [Concomitant]
  14. REGULAR SLIDING SCALE INSULIN [Concomitant]
  15. APREPITANT [Concomitant]
  16. CLINDAMYCIN [Concomitant]
  17. IBUPROFEN [Concomitant]
  18. OXYCODONE (5MG) /ACETAMINOPHEN (325MG) [Concomitant]
  19. PROCHLORPERAZINE [Concomitant]

REACTIONS (3)
  - ASCITES [None]
  - ENTERITIS [None]
  - SMALL INTESTINAL OBSTRUCTION [None]
